FAERS Safety Report 8551055 (Version 2)
Quarter: 2013Q2

REPORT INFORMATION
  Report Type: Spontaneous
  Country: US (occurrence: None)
  Receive Date: 20120327
  Receipt Date: 20120709
  Transmission Date: 20140414
  Serious: Yes (Other)
  Sender: FDA-Public Use
  Company Number: PHHY2011US27224

PATIENT
  Age: 50 Year
  Sex: Male

DRUGS (1)
  1. GLEEVEC [Suspect]
     Indication: NEPHROGENIC SYSTEMIC FIBROSIS
     Dates: start: 2009

REACTIONS (2)
  - NEPHROGENIC SYSTEMIC FIBROSIS [None]
  - DISEASE RECURRENCE [None]
